FAERS Safety Report 7693329-5 (Version None)
Quarter: 2011Q3

REPORT INFORMATION
  Report Type: 
  Country: None (occurrence: None)
  Receive Date: 20110819
  Receipt Date: 20110817
  Transmission Date: 20111222
  Serious: Yes (Death, Hospitalization)
  Sender: FDA-Public Use
  Company Number: PHHY2011IL58686

PATIENT
  Age: 78 Year
  Sex: Female

DRUGS (3)
  1. AFINITOR [Concomitant]
     Indication: CARCINOID SYNDROME
     Dosage: 10 MG, UNK
     Route: 048
  2. SANDOSTATIN LAR [Suspect]
     Dosage: 30 MG, EVERY 28 DAYS
     Dates: start: 20110515
  3. SANDOSTATIN LAR [Suspect]
     Indication: CARCINOID TUMOUR
     Dosage: 30 MG, EVERY 28 DAYS
     Dates: start: 20100527

REACTIONS (2)
  - FALL [None]
  - NEOPLASM MALIGNANT [None]
